FAERS Safety Report 24080949 (Version 2)
Quarter: 2025Q2

REPORT INFORMATION
  Report Type: Spontaneous
  Country: US (occurrence: US)
  Receive Date: 20240711
  Receipt Date: 20250418
  Transmission Date: 20250716
  Serious: Yes (Other)
  Sender: ABBVIE
  Company Number: US-ABBVIE-5833400

PATIENT
  Age: 27 Year
  Sex: Female
  Weight: 81.646 kg

DRUGS (3)
  1. HUMIRA [Suspect]
     Active Substance: ADALIMUMAB
     Indication: Crohn^s disease
     Dosage: LAST ADMINISTRATION DATE : 2024?FORM STRENGTH: 40 MILLIGRAM
     Route: 058
     Dates: start: 2024
  2. HUMIRA [Suspect]
     Active Substance: ADALIMUMAB
     Dosage: FORM STRENGTH: 40 MILLIGRAM
     Route: 058
     Dates: start: 202503
  3. HUMIRA [Suspect]
     Active Substance: ADALIMUMAB
     Dosage: FORM STRENGTH: 40 MILLIGRAM
     Route: 058
     Dates: start: 2024, end: 20250227

REACTIONS (5)
  - Uterine dehiscence [Recovered/Resolved]
  - Maternal exposure during pregnancy [Unknown]
  - Live birth [Unknown]
  - Hypertension [Recovered/Resolved]
  - Discharge [Recovered/Resolved]

NARRATIVE: CASE EVENT DATE: 20250303
